FAERS Safety Report 4903682-0 (Version None)
Quarter: 2006Q1

REPORT INFORMATION
  Report Type: 
  Country: None (occurrence: None)
  Receive Date: 20060208
  Receipt Date: 20060202
  Transmission Date: 20060701
  Serious: Yes (Life-Threatening, Hospitalization)
  Sender: FDA-Public Use
  Company Number: DK-AVENTIS-200611022GDDC

PATIENT
  Age: 56 Year
  Sex: Female

DRUGS (5)
  1. MINIRIN [Suspect]
     Indication: HYPOPITUITARISM
     Route: 048
     Dates: start: 19850101
  2. MINIRIN [Suspect]
     Route: 045
     Dates: start: 19850101
  3. GENOTROPIN [Suspect]
     Indication: HYPOPITUITARISM
     Dates: start: 19980101
  4. HYDROCORTISONE [Suspect]
     Indication: HYPOPITUITARISM
     Route: 048
     Dates: start: 19850101
  5. LEVOTHYROXINE SODIUM [Concomitant]
     Indication: HYPOPITUITARISM
     Route: 048
     Dates: start: 19850101

REACTIONS (2)
  - ADRENOCORTICAL INSUFFICIENCY ACUTE [None]
  - HYPONATRAEMIA [None]
